FAERS Safety Report 5902303-8 (Version None)
Quarter: 2008Q3

REPORT INFORMATION
  Report Type: 
  Country: None (occurrence: None)
  Receive Date: 20080929
  Receipt Date: 20080917
  Transmission Date: 20090109
  Serious: No
  Sender: FDA-Public Use
  Company Number: US-B.I. PHARMACEUTICALS,INC./RIDGEFIELD-2008-BP-14618BP

PATIENT
  Age: 76 Year
  Sex: Female

DRUGS (5)
  1. CATAPRES [Suspect]
     Indication: HYPERTENSION
     Dosage: .2MG
     Route: 048
     Dates: start: 20080601, end: 20080801
  2. CATAPRES [Suspect]
     Dosage: .6MG
     Route: 048
     Dates: start: 20080916, end: 20080916
  3. CATAPRES-TTS-1 [Suspect]
     Indication: HYPERTENSION
     Dosage: .1MG
     Route: 062
     Dates: start: 20080801, end: 20080913
  4. ANTIHYPERTENSIVES [Concomitant]
     Indication: HYPERTENSION
  5. DIURETICS [Concomitant]
     Indication: HYPERTENSION

REACTIONS (5)
  - DRY MOUTH [None]
  - PRURITUS [None]
  - RASH [None]
  - SOMNOLENCE [None]
  - TONGUE DISORDER [None]
